FAERS Safety Report 7467141-6 (Version None)
Quarter: 2011Q2

REPORT INFORMATION
  Report Type: 
  Country: None (occurrence: None)
  Receive Date: 20110509
  Receipt Date: 20101105
  Transmission Date: 20111010
  Serious: No
  Sender: FDA-Public Use
  Company Number: US-ALEXION-A201001410

PATIENT
  Sex: Female

DRUGS (10)
  1. ZOFRAN [Concomitant]
  2. MIRALAX [Concomitant]
  3. CYCLOSPORINE [Concomitant]
  4. LOVENOX [Concomitant]
  5. COLACE [Concomitant]
  6. SOLIRIS [Suspect]
     Indication: PAROXYSMAL NOCTURNAL HAEMOGLOBINURIA
     Dosage: 600 MG, QW
     Route: 042
     Dates: start: 20101026
  7. TYLENOL (CAPLET) [Concomitant]
     Indication: PREMEDICATION
  8. DILAUDID [Concomitant]
  9. LANSOPRAZOLE [Concomitant]
  10. BENADRYL [Concomitant]
     Indication: PREMEDICATION
     Dosage: UNK
     Dates: start: 20101102

REACTIONS (5)
  - CHILLS [None]
  - HEADACHE [None]
  - SYNCOPE [None]
  - HYPOAESTHESIA [None]
  - DIZZINESS [None]
